FAERS Safety Report 4342912-3 (Version None)
Quarter: 2004Q2

REPORT INFORMATION
  Report Type: 
  Country: None (occurrence: None)
  Receive Date: 20040416
  Receipt Date: 20040409
  Transmission Date: 20050107
  Serious: Yes (Other)
  Sender: FDA-Public Use
  Company Number: FRWYE698313APR04

PATIENT
  Age: 50 Year
  Sex: Female

DRUGS (1)
  1. EFFEXOR [Suspect]
     Dosage: 50 MG 60X PER 1 DAY
     Route: 048
     Dates: start: 20040405, end: 20040405

REACTIONS (5)
  - FALL [None]
  - INTENTIONAL OVERDOSE [None]
  - MALAISE [None]
  - SUICIDE ATTEMPT [None]
  - TRAUMATIC HAEMATOMA [None]
